FAERS Safety Report 16247290 (Version 1)
Quarter: 2019Q2

REPORT INFORMATION
  Report Type: Spontaneous
  Country: US (occurrence: US)
  Receive Date: 20190427
  Receipt Date: 20190427
  Transmission Date: 20190711
  Serious: Yes (Other)
  Sender: FDA-Public Use
  Company Number: US-AMGEN-USASP2019062513

PATIENT
  Age: 77 Year
  Sex: Female

DRUGS (4)
  1. AVONEX [Concomitant]
     Active Substance: INTERFERON BETA-1A
     Indication: MULTIPLE SCLEROSIS
  2. ARANESP [Suspect]
     Active Substance: DARBEPOETIN ALFA
     Indication: SIDEROBLASTIC ANAEMIA
     Dosage: UNK
     Route: 065
     Dates: start: 20181219
  3. HYDROXYUREA. [Concomitant]
     Active Substance: HYDROXYUREA
     Indication: PLATELET COUNT INCREASED
  4. ARANESP [Suspect]
     Active Substance: DARBEPOETIN ALFA
     Indication: ESSENTIAL THROMBOCYTHAEMIA

REACTIONS (5)
  - Multiple sclerosis relapse [Unknown]
  - Splenomegaly [Recovering/Resolving]
  - Memory impairment [Recovering/Resolving]
  - Off label use [Unknown]
  - Sideroblastic anaemia [Recovering/Resolving]
